FAERS Safety Report 9798724 (Version 2)
Quarter: 2015Q3

REPORT INFORMATION
  Report Type: Spontaneous
  Country: US (occurrence: US)
  Receive Date: 20140106
  Receipt Date: 20150806
  Transmission Date: 20151125
  Serious: No
  Sender: FDA-Public Use
  Company Number: US-GILEAD-2010-0029931

PATIENT
  Age: 59 Year
  Sex: Female

DRUGS (12)
  1. K-DUR [Concomitant]
     Active Substance: POTASSIUM CHLORIDE
  2. INSPRA [Concomitant]
     Active Substance: EPLERENONE
  3. LETAIRIS [Suspect]
     Active Substance: AMBRISENTAN
     Indication: PULMONARY ARTERIAL HYPERTENSION
     Route: 048
     Dates: start: 20100607, end: 20100613
  4. LISINOPRIL. [Concomitant]
     Active Substance: LISINOPRIL
  5. PROAIR HFA [Concomitant]
     Active Substance: ALBUTEROL SULFATE
  6. WARFARIN [Concomitant]
     Active Substance: WARFARIN
  7. BENADRYL [Concomitant]
     Active Substance: DIPHENHYDRAMINE HYDROCHLORIDE
  8. XANAX [Concomitant]
     Active Substance: ALPRAZOLAM
  9. FLOVENT [Concomitant]
     Active Substance: FLUTICASONE PROPIONATE
  10. LEVOTHYROXIN [Concomitant]
     Active Substance: LEVOTHYROXINE
  11. ACCOLATE [Concomitant]
     Active Substance: ZAFIRLUKAST
  12. LASIX [Concomitant]
     Active Substance: FUROSEMIDE

REACTIONS (1)
  - Fluid retention [Unknown]
